FAERS Safety Report 9919110 (Version 1)
Quarter: 2014Q1

REPORT INFORMATION
  Report Type: Spontaneous
  Country: US (occurrence: US)
  Receive Date: 20140224
  Receipt Date: 20140224
  Transmission Date: 20141002
  Serious: No
  Sender: FDA-Public Use
  Company Number: US-PFIZER INC-2014052468

PATIENT
  Sex: Female

DRUGS (3)
  1. PRISTIQ [Suspect]
     Dosage: 100 MG, DAILY
  2. PRISTIQ [Suspect]
     Dosage: 50 MG, DAILY
  3. PRISTIQ [Suspect]
     Dosage: 50 MG, ALTERNATE DAY

REACTIONS (13)
  - Emotional disorder [Unknown]
  - Tremor [Unknown]
  - Chest discomfort [Unknown]
  - Insomnia [Unknown]
  - Drug withdrawal syndrome [Unknown]
  - Malaise [Unknown]
  - Depression [Unknown]
  - Nausea [Unknown]
  - Influenza like illness [Unknown]
  - Headache [Unknown]
  - Crying [Unknown]
  - Irritability [Unknown]
  - Aggression [Unknown]
